FAERS Safety Report 11096154 (Version 3)
Quarter: 2015Q3

REPORT INFORMATION
  Report Type: Spontaneous
  Country: MX (occurrence: None)
  Receive Date: 20150505
  Receipt Date: 20150716
  Transmission Date: 20151125
  Serious: Yes (Hospitalization, Other)
  Sender: FDA-Public Use
  Company Number: 2015MX011186

PATIENT

DRUGS (1)
  1. ONICIT (PALONOSETRON HYDROCHLORIDE) INJECTION, 0.25 MG/5ML [Suspect]
     Active Substance: PALONOSETRON HYDROCHLORIDE
     Indication: PROPHYLAXIS OF NAUSEA AND VOMITING
     Dosage: 0.05 MG/ML, UNK, INTRAVENOUS
     Route: 042
     Dates: start: 201503, end: 201503

REACTIONS (12)
  - Nausea [None]
  - Arthralgia [None]
  - Product contamination microbial [None]
  - Headache [None]
  - Myalgia [None]
  - Asthenia [None]
  - Pyrexia [None]
  - Chills [None]
  - Burkholderia cepacia complex infection [None]
  - Product counterfeit [None]
  - Transmission of an infectious agent via product [None]
  - Sepsis [None]

NARRATIVE: CASE EVENT DATE: 20150404
